FAERS Safety Report 10070712 (Version 2)
Quarter: 2014Q2

REPORT INFORMATION
  Report Type: Spontaneous
  Country: US (occurrence: US)
  Receive Date: 20140410
  Receipt Date: 20140416
  Transmission Date: 20141212
  Serious: Yes (Hospitalization, Other)
  Sender: FDA-Public Use
  Company Number: US-BAXTER-2014BAX017521

PATIENT
  Sex: Female

DRUGS (3)
  1. DIANEAL LOW CALCIUM [Suspect]
     Indication: PERITONEAL DIALYSIS
     Route: 033
  2. DIANEAL PD2 [Suspect]
     Indication: PERITONEAL DIALYSIS
     Route: 033
     Dates: start: 20140106
  3. DIANEAL PD2 [Suspect]
     Route: 033
     Dates: start: 20140106

REACTIONS (3)
  - Pain in extremity [Recovering/Resolving]
  - Blood phosphorus increased [Unknown]
  - Arthralgia [Recovering/Resolving]
